FAERS Safety Report 12953391 (Version 1)
Quarter: 2016Q4

REPORT INFORMATION
  Report Type: Spontaneous
  Country: US (occurrence: US)
  Receive Date: 20161117
  Receipt Date: 20161117
  Transmission Date: 20170207
  Serious: No
  Sender: FDA-Public Use
  Company Number: US-PFIZER INC-2016535035

PATIENT
  Sex: Male
  Weight: 97 kg

DRUGS (4)
  1. NEURONTIN [Suspect]
     Active Substance: GABAPENTIN
     Dosage: 300 MG, 3X/DAY
     Dates: start: 2014, end: 2014
  2. LYRICA [Suspect]
     Active Substance: PREGABALIN
     Indication: JOINT INJURY
     Dosage: 75 MG, 2X/DAY, 1 IN THE MORNING AND 2 AT NIGHT
  3. NEURONTIN [Suspect]
     Active Substance: GABAPENTIN
     Indication: JOINT INJURY
     Dosage: 100 MG, 3X/DAY
     Dates: start: 2014
  4. VOLTAREN [Concomitant]
     Active Substance: DICLOFENAC SODIUM
     Indication: INFLAMMATION
     Dates: start: 2014

REACTIONS (2)
  - Peripheral swelling [Not Recovered/Not Resolved]
  - Product use issue [Unknown]

NARRATIVE: CASE EVENT DATE: 2014
